FAERS Safety Report 9320925 (Version 1)
Quarter: 2013Q2

REPORT INFORMATION
  Report Type: Spontaneous
  Country: US (occurrence: None)
  Receive Date: 20130528
  Receipt Date: 20130528
  Transmission Date: 20140414
  Serious: Yes (Other)
  Sender: FDA-Public Use
  Company Number: AUR-APL-2013-04304

PATIENT
  Age: 84 Year
  Sex: Male

DRUGS (5)
  1. LEVOFLOXACIN (LEVOFLOXACIN) [Concomitant]
     Indication: RESPIRATORY TRACT INFECTION
     Dates: start: 20120703, end: 20120717
  2. LEVOTHYROXINE SODIUM (LEVOTHYROXINE SODIUM) [Concomitant]
  3. ESOMEPRAZOLE SODIUM (ESOMEPRAZOLE SODIUM) [Concomitant]
  4. FUROSEMIDE (FUROSEMIDE) [Concomitant]
  5. WARFARIN SODIUM (WARFARIN SODIUM) [Concomitant]

REACTIONS (7)
  - Aggression [None]
  - Coprolalia [None]
  - Depression [None]
  - Insomnia [None]
  - Restlessness [None]
  - Suicide attempt [None]
  - Screaming [None]
